FAERS Safety Report 24939037 (Version 1)
Quarter: 2025Q1

REPORT INFORMATION
  Report Type: Spontaneous
  Country: IN (occurrence: IN)
  Receive Date: 20250206
  Receipt Date: 20250206
  Transmission Date: 20250408
  Serious: Yes (Hospitalization)
  Sender: MERCK
  Company Number: IN-AstraZeneca-2024A182976

PATIENT
  Age: 40 Year
  Sex: Female

DRUGS (9)
  1. PEMBROLIZUMAB [Suspect]
     Active Substance: PEMBROLIZUMAB
     Indication: Breast cancer
     Route: 042
     Dates: start: 20240510, end: 20241113
  2. CARBOPLATIN [Suspect]
     Active Substance: CARBOPLATIN
     Indication: Breast cancer
     Route: 042
     Dates: start: 20240510, end: 20240717
  3. PACLITAXEL [Suspect]
     Active Substance: PACLITAXEL
     Indication: Breast cancer
     Route: 042
     Dates: start: 20240510, end: 20240717
  4. VITAMINS NOS [Concomitant]
     Active Substance: VITAMINS
     Indication: Prophylaxis
     Dates: start: 20240511
  5. VITAMINS NOS [Concomitant]
     Active Substance: VITAMINS
     Dates: start: 20240610
  6. LACTULOSE [Concomitant]
     Active Substance: LACTULOSE
     Indication: Constipation
     Dates: start: 20240511
  7. BETADINE [Concomitant]
     Active Substance: POVIDONE-IODINE
     Indication: Mucolytic treatment
     Route: 061
     Dates: start: 20240510
  8. PANTOPRAZOLE SODIUM [Concomitant]
     Active Substance: PANTOPRAZOLE SODIUM
     Indication: Vomiting
     Route: 061
     Dates: start: 20240610
  9. DEXAMETHASONE SODIUM PHOSPHATE [Concomitant]
     Active Substance: DEXAMETHASONE SODIUM PHOSPHATE
     Indication: Hypersensitivity
     Dates: start: 20240610

REACTIONS (3)
  - Mucosal inflammation [Recovered/Resolved]
  - Stomatitis [Unknown]
  - Glossitis [Unknown]

NARRATIVE: CASE EVENT DATE: 20240101
